FAERS Safety Report 13540370 (Version 1)
Quarter: 2017Q2

REPORT INFORMATION
  Report Type: Report from Study
  Country: BR (occurrence: BR)
  Receive Date: 20170512
  Receipt Date: 20170512
  Transmission Date: 20170830
  Serious: Yes (Hospitalization)
  Sender: FDA-Public Use
  Company Number: BR-SA-2017SA083121

PATIENT
  Age: 51 Year
  Sex: Female
  Weight: 57 kg

DRUGS (2)
  1. ACICLOVIR [Concomitant]
     Active Substance: ACYCLOVIR
  2. LEMTRADA [Suspect]
     Active Substance: ALEMTUZUMAB
     Indication: MULTIPLE SCLEROSIS
     Dosage: DOSE: 1 VIAL PER INFUSION
     Route: 041
     Dates: start: 20170327

REACTIONS (9)
  - Malaise [Recovered/Resolved]
  - Throat tightness [Recovered/Resolved]
  - Musculoskeletal disorder [Recovered/Resolved]
  - Hypoaesthesia [Recovered/Resolved]
  - Erythema [Recovered/Resolved]
  - Dysphagia [Recovered/Resolved]
  - Urticaria [Recovered/Resolved]
  - Dry mouth [Recovered/Resolved]
  - Dry skin [Recovered/Resolved]

NARRATIVE: CASE EVENT DATE: 20170328
